FAERS Safety Report 22946701 (Version 4)
Quarter: 2023Q4

REPORT INFORMATION
  Report Type: Spontaneous
  Country: PL (occurrence: PL)
  Receive Date: 20230915
  Receipt Date: 20231104
  Transmission Date: 20240110
  Serious: Yes (Death, Hospitalization, Other)
  Sender: FDA-Public Use
  Company Number: PL-CELLTRION INC.-2023PL015981

PATIENT

DRUGS (2)
  1. RITUXIMAB [Suspect]
     Active Substance: RITUXIMAB
     Indication: Chronic lymphocytic leukaemia
     Dosage: 375 MG/M2, EVERY 28 DAYS (CYCLICAL)
     Route: 042
     Dates: start: 20221130, end: 20230727
  2. BENDAMUSTINE [Suspect]
     Active Substance: BENDAMUSTINE
     Indication: Chronic lymphocytic leukaemia
     Dosage: 90 MG/M2, EVERY 28 DAYS (CYCLICAL)
     Route: 042
     Dates: start: 20221130, end: 20230727

REACTIONS (3)
  - Pneumonia [Fatal]
  - Anaemia [Not Recovered/Not Resolved]
  - Condition aggravated [Unknown]

NARRATIVE: CASE EVENT DATE: 20230803
